FAERS Safety Report 10261990 (Version 2)
Quarter: 2014Q2

REPORT INFORMATION
  Report Type: Spontaneous
  Country: LT (occurrence: LT)
  Receive Date: 20140626
  Receipt Date: 20140630
  Transmission Date: 20141212
  Serious: Yes (Other)
  Sender: FDA-Public Use
  Company Number: LT-TEVA-489827ISR

PATIENT
  Age: 32 Year
  Sex: 0
  Weight: 57 kg

DRUGS (1)
  1. ESCITALOPRAM TEVA RITECOL MAY HAVE -301-267-2955 [Suspect]
     Dosage: 10 MILLIGRAM DAILY;
     Route: 048
     Dates: start: 201309, end: 201406

REACTIONS (1)
  - Neutropenia [Not Recovered/Not Resolved]
